FAERS Safety Report 5671369-5 (Version None)
Quarter: 2008Q1

REPORT INFORMATION
  Report Type: 
  Country: None (occurrence: None)
  Receive Date: 20080313
  Receipt Date: 20071206
  Transmission Date: 20080703
  Serious: No
  Sender: FDA-Public Use
  Company Number: 2007S1012889

PATIENT
  Age: 57 Year
  Sex: Male

DRUGS (5)
  1. RANITIDINE [Suspect]
     Indication: EPIGASTRIC DISCOMFORT
     Dosage: 300 MG; TWICE A DAY
  2. LANSOPRAZOLE [Suspect]
     Indication: EPIGASTRIC DISCOMFORT
     Dosage: 30 MG; DAILY
  3. CARBAMAZEPINE [Concomitant]
  4. PROPRANOLOL [Concomitant]
  5. QUETIAPINE FUMARATE [Concomitant]

REACTIONS (7)
  - BACILLUS INFECTION [None]
  - DRUG DISPENSING ERROR [None]
  - FUNGAL SKIN INFECTION [None]
  - SKIN DISCOLOURATION [None]
  - SWEAT DISCOLOURATION [None]
  - TINEA VERSICOLOUR [None]
  - WRONG DRUG ADMINISTERED [None]
